FAERS Safety Report 24800860 (Version 1)
Quarter: 2025Q1

REPORT INFORMATION
  Report Type: Spontaneous
  Country: CN (occurrence: CN)
  Receive Date: 20250102
  Receipt Date: 20250102
  Transmission Date: 20250409
  Serious: Yes (Death, Life-Threatening, Hospitalization)
  Sender: PAREXEL
  Company Number: CN-SHANGHAI JUNSHI BIOSCIENCES CO., LTD.-CN2024012433

PATIENT

DRUGS (1)
  1. TORIPALIMAB [Suspect]
     Active Substance: TORIPALIMAB
     Indication: Oropharyngeal cancer
     Dosage: 240 MG, Q3WEEKS
     Route: 042
     Dates: start: 20240604, end: 20240625

REACTIONS (8)
  - Acute respiratory failure [Fatal]
  - Myasthenia gravis [Fatal]
  - Immune-mediated lung disease [Fatal]
  - Immune-mediated myocarditis [Fatal]
  - Renal failure [Fatal]
  - Liver injury [Unknown]
  - Off label use [Unknown]
  - Product administration error [Unknown]

NARRATIVE: CASE EVENT DATE: 20240604
